FAERS Safety Report 12188176 (Version 1)
Quarter: 2016Q1

REPORT INFORMATION
  Report Type: Spontaneous
  Country: US (occurrence: US)
  Receive Date: 20160317
  Receipt Date: 20160317
  Transmission Date: 20160526
  Serious: Yes (Hospitalization, Other)
  Sender: FDA-Public Use
  Company Number: US-GLAXOSMITHKLINE-US2016GSK035633

PATIENT
  Age: 45 Year
  Sex: Female

DRUGS (4)
  1. CECLOR [Suspect]
     Active Substance: CEFACLOR
  2. ADVAIR DISKUS [Suspect]
     Active Substance: FLUTICASONE PROPIONATE\SALMETEROL XINAFOATE
  3. VENTOLIN HFA [Suspect]
     Active Substance: ALBUTEROL SULFATE
  4. ANORO ELLIPTA [Suspect]
     Active Substance: UMECLIDINIUM BROMIDE\VILANTEROL TRIFENATATE

REACTIONS (3)
  - Drug hypersensitivity [Unknown]
  - Hospitalisation [Unknown]
  - Urticaria [Unknown]

NARRATIVE: CASE EVENT DATE: 20030225
